FAERS Safety Report 23473308 (Version 1)
Quarter: 2024Q1

REPORT INFORMATION
  Report Type: Spontaneous
  Country: US (occurrence: US)
  Receive Date: 20240203
  Receipt Date: 20240203
  Transmission Date: 20240409
  Serious: No
  Sender: FDA-Public Use
  Company Number: US-HORIZON THERAPEUTICS-HZN-2023-003865

PATIENT

DRUGS (12)
  1. TEPEZZA [Suspect]
     Active Substance: TEPROTUMUMAB-TRBW
     Indication: Toxic goitre
     Dosage: FIRST DOSE
     Route: 042
     Dates: start: 20230413
  2. TEPEZZA [Suspect]
     Active Substance: TEPROTUMUMAB-TRBW
     Dosage: UNKNOWN INFUSION, 500 MG SDV/INJ PWD ,50.8 ML = 2416 MG INTRAVENOUSLY, INFUSE 1ST MAINTENANCE DOSE I
     Route: 042
     Dates: start: 2023
  3. TEPEZZA [Suspect]
     Active Substance: TEPROTUMUMAB-TRBW
     Dosage: UNKNOWN INFUSION, 500 MG SDV/INJ PWD ,50.8 ML = 2416 MG INTRAVENOUSLY, INFUSE 1ST MAINTENANCE DOSE I
     Route: 042
     Dates: start: 2023
  4. CLOZARIL [Concomitant]
     Active Substance: CLOZAPINE
     Dosage: 100 MG
     Route: 065
  5. VITAMIN D3 [Concomitant]
     Active Substance: CHOLECALCIFEROL
     Dosage: 50 UG
     Route: 065
  6. METHIMAZOLE [Concomitant]
     Active Substance: METHIMAZOLE
     Dosage: 5 MG
     Route: 065
  7. SODIUM CHLORIDE [Concomitant]
     Active Substance: SODIUM CHLORIDE
  8. SODIUM CHLORIDE [Concomitant]
     Active Substance: SODIUM CHLORIDE
  9. STERILE WATER [Concomitant]
     Active Substance: WATER
  10. KETOCONAZOLE [Concomitant]
     Active Substance: KETOCONAZOLE
  11. ACETAMINOPHEN [Concomitant]
     Active Substance: ACETAMINOPHEN
     Dosage: 500 MG
  12. ATIVAN [Concomitant]
     Active Substance: LORAZEPAM
     Dosage: 1 MG

REACTIONS (7)
  - Rash [Unknown]
  - Infusion site rash [Unknown]
  - Weight decreased [Unknown]
  - Ocular hyperaemia [Not Recovered/Not Resolved]
  - Eye pruritus [Not Recovered/Not Resolved]
  - Periorbital swelling [Not Recovered/Not Resolved]
  - Rash erythematous [Recovering/Resolving]

NARRATIVE: CASE EVENT DATE: 20230101
